FAERS Safety Report 21402822 (Version 11)
Quarter: 2023Q2

REPORT INFORMATION
  Report Type: Report from Study
  Country: CN (occurrence: CN)
  Receive Date: 20221003
  Receipt Date: 20230424
  Transmission Date: 20230721
  Serious: Yes (Hospitalization, Other)
  Sender: FDA-Public Use
  Company Number: CN-TAKEDA-2022TUS068788

PATIENT
  Age: 58 Year
  Sex: Female
  Weight: 45 kg

DRUGS (5)
  1. VEDOLIZUMAB [Suspect]
     Active Substance: VEDOLIZUMAB
     Indication: Colitis ulcerative
     Dosage: 300 MILLIGRAM
     Route: 042
     Dates: start: 20220816
  2. MESALAMINE [Concomitant]
     Active Substance: MESALAMINE
     Indication: Inflammatory bowel disease
     Dosage: UNK
     Dates: start: 20211110
  3. MESALAMINE [Concomitant]
     Active Substance: MESALAMINE
     Dosage: 1000 MILLIGRAM, TID
     Route: 048
     Dates: start: 20220517
  4. Compound Eosinophil Lactobacillus [Concomitant]
     Indication: Inflammatory bowel disease
     Dosage: 1000 MILLIGRAM, TID
     Route: 048
     Dates: start: 20211110
  5. LIVE COMBINED BIFIDOBACTERIUM, LACTOBACILUS AND ENTEROCOCCUS [Concomitant]
     Indication: Inflammatory bowel disease
     Dosage: 420 MILLIGRAM, TID
     Route: 048
     Dates: start: 20220517

REACTIONS (5)
  - Colitis ulcerative [Not Recovered/Not Resolved]
  - Clostridium difficile infection [Unknown]
  - Malnutrition [Not Recovered/Not Resolved]
  - Anaemia [Not Recovered/Not Resolved]
  - Pyrexia [Not Recovered/Not Resolved]

NARRATIVE: CASE EVENT DATE: 20220919
